FAERS Safety Report 9972648 (Version 1)
Quarter: 2014Q1

REPORT INFORMATION
  Report Type: Report from Study
  Country: US (occurrence: US)
  Receive Date: 20140306
  Receipt Date: 20140306
  Transmission Date: 20141002
  Serious: No
  Sender: FDA-Public Use
  Company Number: US-ABBVIE-13P-163-1154344-00

PATIENT
  Sex: Male

DRUGS (2)
  1. HUMIRA [Suspect]
     Indication: RHEUMATOID ARTHRITIS
     Route: 058
     Dates: start: 201308, end: 20130829
  2. HUMIRA [Suspect]
     Route: 058
     Dates: start: 20130908

REACTIONS (2)
  - Nephrolithiasis [Recovered/Resolved]
  - Rheumatoid arthritis [Unknown]
